FAERS Safety Report 16327552 (Version 1)
Quarter: 2019Q2

REPORT INFORMATION
  Report Type: Spontaneous
  Country: GB (occurrence: GB)
  Receive Date: 20190517
  Receipt Date: 20190517
  Transmission Date: 20190711
  Serious: Yes (Death, Hospitalization, Other)
  Sender: FDA-Public Use
  Company Number: GB-SHIRE-GB201911303

PATIENT

DRUGS (14)
  1. 555 (PRUCALOPRIDE) [Suspect]
     Active Substance: PRUCALOPRIDE
     Indication: PRODUCT USED FOR UNKNOWN INDICATION
     Route: 065
  2. ROTIGOTINE [Suspect]
     Active Substance: ROTIGOTINE
     Indication: PARKINSON^S DISEASE
     Dosage: 4 MILLIGRAM
     Route: 062
  3. ZELAPAR [Concomitant]
     Active Substance: SELEGILINE HYDROCHLORIDE
  4. ROTIGOTINE [Suspect]
     Active Substance: ROTIGOTINE
     Dosage: 2 UNK
     Route: 062
  5. STALEVO [Suspect]
     Active Substance: CARBIDOPA\ENTACAPONE\LEVODOPA
     Indication: PARKINSON^S DISEASE
     Dosage: UNK
     Route: 048
  6. AMANTADINE. [Concomitant]
     Active Substance: AMANTADINE HYDROCHLORIDE
  7. STALEVO [Suspect]
     Active Substance: CARBIDOPA\ENTACAPONE\LEVODOPA
     Dosage: DOSE REDUCED
     Route: 048
  8. LACTULOSE. [Concomitant]
     Active Substance: LACTULOSE
  9. MOTILIUM [Concomitant]
     Active Substance: DOMPERIDONE
  10. WARFARIN [Concomitant]
     Active Substance: WARFARIN
  11. MODOPAR [Concomitant]
     Active Substance: BENSERAZIDE HYDROCHLORIDE\LEVODOPA
  12. ROTIGOTINE [Suspect]
     Active Substance: ROTIGOTINE
     Dosage: 2 UNK
     Route: 062
  13. STALEVO [Suspect]
     Active Substance: CARBIDOPA\ENTACAPONE\LEVODOPA
     Dosage: UNK
     Route: 048
     Dates: end: 20140102
  14. MOVICOL [Concomitant]
     Active Substance: POLYETHYLENE GLYCOL 3350\POTASSIUM CHLORIDE\SODIUM BICARBONATE\SODIUM CHLORIDE

REACTIONS (11)
  - Hyperkinesia [Unknown]
  - Counterfeit product administered [Unknown]
  - Product complaint [Unknown]
  - Inappropriate schedule of product administration [Unknown]
  - Deep vein thrombosis [Fatal]
  - Parkinson^s disease [Unknown]
  - Pulmonary embolism [Fatal]
  - Chromaturia [Unknown]
  - Visual field defect [Unknown]
  - Hypertensive heart disease [Fatal]
  - Drug interaction [Unknown]

NARRATIVE: CASE EVENT DATE: 201110
